FAERS Safety Report 17813601 (Version 1)
Quarter: 2020Q2

REPORT INFORMATION
  Report Type: Spontaneous
  Country: GB (occurrence: GB)
  Receive Date: 20200521
  Receipt Date: 20200521
  Transmission Date: 20200714
  Serious: Yes (Hospitalization)
  Sender: FDA-Public Use
  Company Number: GB-MYLANLABS-2020M1050049

PATIENT
  Age: 55 Year
  Sex: Male
  Weight: 50 kg

DRUGS (2)
  1. LORLATINIB [Suspect]
     Active Substance: LORLATINIB
     Indication: NON-SMALL CELL LUNG CANCER STAGE IV
     Dosage: 100 MILLIGRAM, QD
     Route: 048
     Dates: start: 20200127, end: 20200424
  2. ATORVASTATIN [Suspect]
     Active Substance: ATORVASTATIN
     Indication: BLOOD TRIGLYCERIDES INCREASED
     Dosage: 20 MILLIGRAM, QD
     Route: 048
     Dates: start: 20200213, end: 20200424

REACTIONS (3)
  - Liver function test abnormal [Not Recovered/Not Resolved]
  - Confusional state [Unknown]
  - Jaundice cholestatic [Not Recovered/Not Resolved]

NARRATIVE: CASE EVENT DATE: 20200327
